FAERS Safety Report 4345276-4 (Version None)
Quarter: 2004Q2

REPORT INFORMATION
  Report Type: 
  Country: None (occurrence: None)
  Receive Date: 20040420
  Receipt Date: 20040406
  Transmission Date: 20050107
  Serious: Yes (Other)
  Sender: FDA-Public Use
  Company Number: US-JNJFOC-20040304950

PATIENT
  Sex: Male

DRUGS (20)
  1. REMICADE [Suspect]
     Indication: CROHN'S DISEASE
     Dosage: 1 TIME EVERY 2 MONTHS
  2. NITRO PATCH (GLYCERYL TRINITRATE) [Concomitant]
  3. PENTASA [Concomitant]
  4. ALLOPURINOL [Concomitant]
  5. METOPROLOL (METOPROLOL) [Concomitant]
  6. RANITIDINE [Concomitant]
  7. TRICOR [Concomitant]
  8. VIT B-12 (CYANOCOBALAMIN) [Concomitant]
  9. TRAZODONE HCL [Concomitant]
  10. POTASSIUM (POTASSIUM) [Concomitant]
  11. MAGNESIUM (MAGNESIUM) [Concomitant]
  12. VITAMIN E [Concomitant]
  13. MULTIVITAMIN (MULTIVITAMINS) [Concomitant]
  14. PROBIOTIC (ALL OTHER THERAPEUTIC PRODUCTS) [Concomitant]
  15. SIMETHICONE (DIMETICONE, ACTIVATED) [Concomitant]
  16. DICYCLOMINE [Concomitant]
  17. PHENERGAN [Concomitant]
  18. TYLENOL [Concomitant]
  19. OXYCODONE HCL [Concomitant]
  20. BENADRYL [Concomitant]

REACTIONS (2)
  - BLOOD TRIGLYCERIDES INCREASED [None]
  - LIPIDS INCREASED [None]
